FAERS Safety Report 7427184-5 (Version None)
Quarter: 2011Q2

REPORT INFORMATION
  Report Type: 
  Country: None (occurrence: None)
  Receive Date: 20110420
  Receipt Date: 20110406
  Transmission Date: 20111010
  Serious: Yes (Other)
  Sender: FDA-Public Use
  Company Number: CA-JNJFOC-20110403908

PATIENT
  Sex: Male
  Weight: 46 kg

DRUGS (6)
  1. VITAMIN D [Concomitant]
  2. CELEBREX [Concomitant]
     Dosage: PRN
  3. FOLIC ACID [Concomitant]
  4. CALCIUM [Concomitant]
  5. REMICADE [Suspect]
     Indication: ANKYLOSING SPONDYLITIS
     Route: 042
  6. TYLENOL W/ CODEINE NO. 3 [Concomitant]

REACTIONS (2)
  - SYNOVIAL CYST [None]
  - ARTHRALGIA [None]
